FAERS Safety Report 24653325 (Version 1)
Quarter: 2024Q4

REPORT INFORMATION
  Report Type: Report from Study
  Country: FR (occurrence: FR)
  Receive Date: 20241122
  Receipt Date: 20241122
  Transmission Date: 20250115
  Serious: Yes (Other)
  Sender: ALNYLAM PHARMACEUTICALS
  Company Number: FR-ALNYLAM PHARMACEUTICALS, INC.-ALN-2020-000268

PATIENT

DRUGS (1)
  1. ONPATTRO [Suspect]
     Active Substance: PATISIRAN SODIUM
     Indication: Hereditary neuropathic amyloidosis
     Dosage: UNK
     Route: 042

REACTIONS (3)
  - Hyperkalaemia [Unknown]
  - Balance disorder [Unknown]
  - Unevaluable event [Unknown]

NARRATIVE: CASE EVENT DATE: 20200217
